FAERS Safety Report 6852867-5 (Version None)
Quarter: 2010Q3

REPORT INFORMATION
  Report Type: 
  Country: None (occurrence: None)
  Receive Date: 20100717
  Receipt Date: 20071126
  Transmission Date: 20110219
  Serious: No
  Sender: FDA-Public Use
  Company Number: US-PFIZER INC-2007099565

PATIENT
  Sex: Male
  Weight: 90.909 kg

DRUGS (5)
  1. CHANTIX [Suspect]
     Indication: SMOKING CESSATION THERAPY
     Dates: start: 20071101
  2. ZOLOFT [Concomitant]
  3. ZETIA [Concomitant]
  4. ALPRAZOLAM [Concomitant]
  5. FISH OIL [Concomitant]

REACTIONS (1)
  - CONSTIPATION [None]
